FAERS Safety Report 11114638 (Version 1)
Quarter: 2015Q2

REPORT INFORMATION
  Report Type: Spontaneous
  Country: BR (occurrence: BR)
  Receive Date: 20150515
  Receipt Date: 20150515
  Transmission Date: 20150821
  Serious: Yes (Hospitalization)
  Sender: FDA-Public Use
  Company Number: BR-ROCHE-1577059

PATIENT
  Age: 12 Year
  Sex: Male

DRUGS (4)
  1. RIVOTRIL [Suspect]
     Active Substance: CLONAZEPAM
     Indication: ANXIETY
  2. RIVOTRIL [Suspect]
     Active Substance: CLONAZEPAM
     Indication: SEIZURE
  3. RIVOTRIL [Suspect]
     Active Substance: CLONAZEPAM
     Indication: SEDATION
     Dosage: 30 TABLETS
     Route: 065
  4. RIVOTRIL [Suspect]
     Active Substance: CLONAZEPAM
     Indication: MUSCLE RELAXANT THERAPY

REACTIONS (4)
  - Accidental exposure to product by child [Unknown]
  - Somnolence [Unknown]
  - Impaired reasoning [Unknown]
  - Dysphonia [Unknown]

NARRATIVE: CASE EVENT DATE: 20150410
